FAERS Safety Report 4559488-8 (Version None)
Quarter: 2005Q1

REPORT INFORMATION
  Report Type: 
  Country: None (occurrence: None)
  Receive Date: 20050119
  Receipt Date: 20050110
  Transmission Date: 20050727
  Serious: Yes (Life-Threatening, Other)
  Sender: FDA-Public Use
  Company Number: 2004116981

PATIENT
  Age: 28 Year
  Sex: Male
  Weight: 100 kg

DRUGS (21)
  1. LINEZOLID SOLUTION, STERILE (LINEZOLID) [Suspect]
     Indication: PNEUMONIA STAPHYLOCOCCAL
     Dosage: 1200 MG (DAILY), INTRAVENOUS
     Route: 042
     Dates: start: 20041126, end: 20041213
  2. SUFENTANIL CITRATE [Suspect]
     Indication: NEUROMUSCULAR BLOCKING THERAPY
     Dosage: 40 UG/H, INTRAVENOUS
     Route: 042
     Dates: start: 20041117, end: 20041212
  3. MIDAZOLAM HCL [Concomitant]
  4. PROPOFOL [Concomitant]
  5. VANCOMYCIN HYRDOCHLORIDE (VANCOMYCIN HYDROCHLORIDE) [Concomitant]
  6. CISATRACURIUM BESILATE (CISATRACURIUM BESILATE) [Concomitant]
  7. ACETAMINOPHEN [Concomitant]
  8. NOREPINEPHRINE (NREPHINEPHRINE) [Concomitant]
  9. SALBUTAMOL SULFATE (SALBUTAMOL SULFATE) [Concomitant]
  10. CEFTRIAXONE [Concomitant]
  11. OFLOXACIN [Concomitant]
  12. GENTAMICIN SULFATE [Concomitant]
  13. CLOXACILLIN (CLOXACILLIN) [Concomitant]
  14. IMMUNE GLOBULIN INTRAVENOUS (HUMAN) [Concomitant]
  15. LEVOMEPROMAZINE (LEVEOMEPROMAZINE) [Concomitant]
  16. HALOPERIDOL [Concomitant]
  17. ALPRAZOLAM [Concomitant]
  18. HEPARIN-FRACTION, CALCIUM SALT (HEPARIN-FRACTION, CALCIUM SALT) [Concomitant]
  19. CLONIDINE HCL [Concomitant]
  20. IPRATROPIUM BROMIDE [Concomitant]
  21. THIOPENTAL SODIUM [Concomitant]

REACTIONS (8)
  - CHROMATURIA [None]
  - CREATININE RENAL CLEARANCE INCREASED [None]
  - DRUG EFFECT DECREASED [None]
  - HAEMOCONCENTRATION [None]
  - HEART RATE INCREASED [None]
  - LABORATORY TEST ABNORMAL [None]
  - POLYURIA [None]
  - WEIGHT DECREASED [None]
